FAERS Safety Report 5083884-6 (Version None)
Quarter: 2006Q3

REPORT INFORMATION
  Report Type: 
  Country: None (occurrence: None)
  Receive Date: 20060727
  Receipt Date: 20060420
  Transmission Date: 20061208
  Serious: Yes (Other)
  Sender: FDA-Public Use
  Company Number: 2006054971

PATIENT
  Age: 63 Year
  Sex: Female
  Weight: 63.05 kg

DRUGS (5)
  1. LYRICA [Suspect]
     Indication: NEURALGIA
     Dosage: 150 MG (75 MG, 2 IN 1 D)
     Dates: start: 20060403
  2. VITAMINS (VITAMINS) [Concomitant]
  3. VICODIN [Concomitant]
  4. PREMARIN [Concomitant]
  5. VALIUM [Concomitant]

REACTIONS (1)
  - ALOPECIA [None]
